FAERS Safety Report 6025254-X (Version None)
Quarter: 2008Q4

REPORT INFORMATION
  Report Type: 
  Country: None (occurrence: None)
  Receive Date: 20081229
  Receipt Date: 20081229
  Transmission Date: 20090506
  Serious: Yes (Other)
  Sender: FDA-Public Use
  Company Number: None

PATIENT
  Sex: Female
  Weight: 61.2356 kg

DRUGS (1)
  1. ALDARA [Suspect]
     Indication: SKIN PAPILLOMA
     Dosage: .25G 1 TIME NIGHTLY TOP
     Route: 061
     Dates: start: 20081219, end: 20081223

REACTIONS (2)
  - LIP BLISTER [None]
  - LIP SWELLING [None]
